FAERS Safety Report 24652393 (Version 1)
Quarter: 2024Q4

REPORT INFORMATION
  Report Type: Spontaneous
  Country: US (occurrence: US)
  Receive Date: 20241122
  Receipt Date: 20241122
  Transmission Date: 20250115
  Serious: Yes (Hospitalization)
  Sender: MYLAN
  Company Number: US-MYLANLABS-2024M1104785

PATIENT
  Age: 88 Year
  Sex: Female

DRUGS (1)
  1. LIPITOR [Suspect]
     Active Substance: ATORVASTATIN CALCIUM
     Indication: Blood cholesterol abnormal
     Dosage: 40 MILLIGRAM, QD (ONCE A DAY)
     Route: 065

REACTIONS (7)
  - Palpitations [Unknown]
  - Balance disorder [Unknown]
  - Illness [Unknown]
  - Dizziness [Unknown]
  - Myalgia [Unknown]
  - Muscle spasms [Unknown]
  - Wrong technique in product usage process [Unknown]
